FAERS Safety Report 14028177 (Version 1)
Quarter: 2017Q3

REPORT INFORMATION
  Report Type: Spontaneous
  Country: US (occurrence: US)
  Receive Date: 20170930
  Receipt Date: 20170930
  Transmission Date: 20171128
  Serious: Yes (Hospitalization, Disabling)
  Sender: FDA-Public Use
  Company Number: None

PATIENT
  Age: 27 Year
  Sex: Male
  Weight: 105.75 kg

DRUGS (5)
  1. CLONAZEPAM. [Suspect]
     Active Substance: CLONAZEPAM
     Indication: ANXIETY
     Route: 048
  2. EFFEXOR [Concomitant]
     Active Substance: VENLAFAXINE HYDROCHLORIDE
  3. KLONOPIN [Concomitant]
     Active Substance: CLONAZEPAM
  4. ATENOLOL. [Concomitant]
     Active Substance: ATENOLOL
  5. CLONAZEPAM. [Suspect]
     Active Substance: CLONAZEPAM
     Indication: PANIC REACTION
     Route: 048

REACTIONS (12)
  - Withdrawal syndrome [None]
  - Gait inability [None]
  - Vertigo [None]
  - Derealisation [None]
  - Paraesthesia [None]
  - Impaired driving ability [None]
  - Tremor [None]
  - Dysphemia [None]
  - Ventricular extrasystoles [None]
  - Crying [None]
  - Neurotransmitter level altered [None]
  - Weight decreased [None]

NARRATIVE: CASE EVENT DATE: 20130801
